FAERS Safety Report 4484014-1 (Version None)
Quarter: 2004Q4

REPORT INFORMATION
  Report Type: 
  Country: None (occurrence: None)
  Receive Date: 20041020
  Receipt Date: 20041004
  Transmission Date: 20050328
  Serious: Yes (Other)
  Sender: FDA-Public Use
  Company Number: USA041080099

PATIENT
  Age: 42 Year
  Sex: Female

DRUGS (5)
  1. HUMULIN N [Suspect]
     Dates: start: 19910101, end: 20010101
  2. HUMULIN R [Suspect]
     Dates: start: 19910101, end: 20010101
  3. HUMALOG [Suspect]
     Dates: start: 20010101, end: 20041001
  4. NOVOLIN 70/30 [Concomitant]
  5. NOVOLOG MIX 70/30 [Concomitant]

REACTIONS (5)
  - BLOOD GLUCOSE INCREASED [None]
  - FEELING ABNORMAL [None]
  - LOSS OF CONSCIOUSNESS [None]
  - MEDICATION ERROR [None]
  - PHARMACEUTICAL PRODUCT COMPLAINT [None]
